FAERS Safety Report 15813917 (Version 2)
Quarter: 2019Q1

REPORT INFORMATION
  Report Type: Spontaneous
  Country: IT (occurrence: IT)
  Receive Date: 20190111
  Receipt Date: 20190122
  Transmission Date: 20190417
  Serious: Yes (Hospitalization)
  Sender: FDA-Public Use
  Company Number: IT-JNJFOC-20190108916

PATIENT
  Age: 93 Year
  Sex: Male
  Weight: 80 kg

DRUGS (1)
  1. DUROGESIC [Suspect]
     Active Substance: FENTANYL
     Indication: BONE PAIN
     Route: 062
     Dates: start: 20181205, end: 20181207

REACTIONS (3)
  - Intentional product misuse [Recovered/Resolved]
  - Sopor [Recovered/Resolved]
  - Confusional state [Recovered/Resolved]
